FAERS Safety Report 5779514-8 (Version None)
Quarter: 2008Q2

REPORT INFORMATION
  Report Type: 
  Country: None (occurrence: None)
  Receive Date: 20080619
  Receipt Date: 20080609
  Transmission Date: 20081010
  Serious: Yes (Other)
  Sender: FDA-Public Use
  Company Number: US-PFIZER INC-2007098091

PATIENT
  Sex: Female
  Weight: 82.6 kg

DRUGS (2)
  1. CELEBREX [Suspect]
     Indication: ARTHRALGIA
     Route: 048
  2. VIOXX [Suspect]
     Indication: ARTHRALGIA
     Route: 048
     Dates: start: 20010601, end: 20011003

REACTIONS (4)
  - ARRHYTHMIA [None]
  - BALANCE DISORDER [None]
  - DIZZINESS [None]
  - VISUAL DISTURBANCE [None]
